FAERS Safety Report 25900782 (Version 2)
Quarter: 2025Q4

REPORT INFORMATION
  Report Type: Spontaneous
  Country: EU (occurrence: EU)
  Receive Date: 20251009
  Receipt Date: 20251030
  Transmission Date: 20260118
  Serious: Yes (Other)
  Sender: BAYER HEALTHCARE PHARMACEUTICALS INC.
  Company Number: EU-BAYER-2025A130660

PATIENT
  Age: 52 Year
  Sex: Male

DRUGS (4)
  1. NUBEQA [Suspect]
     Active Substance: DAROLUTAMIDE
     Dosage: 600 MG, BID
     Dates: start: 20240927
  2. DOCETAXEL [Suspect]
     Active Substance: DOCETAXEL
     Dosage: (6 CYCLES)
     Dates: end: 20250110
  3. ATORVASTATIN [Concomitant]
     Active Substance: ATORVASTATIN
  4. LEUPROLIDE ACETATE [Concomitant]
     Active Substance: LEUPROLIDE ACETATE

REACTIONS (7)
  - Metastases to bladder [None]
  - Bladder injury [None]
  - Metastases to bone [None]
  - Hormone-dependent prostate cancer [Not Recovered/Not Resolved]
  - Alopecia [None]
  - Lymphadenopathy [None]
  - Vitamin D deficiency [None]

NARRATIVE: CASE EVENT DATE: 20250901
